FAERS Safety Report 7790145-0 (Version None)
Quarter: 2011Q3

REPORT INFORMATION
  Report Type: 
  Country: None (occurrence: None)
  Receive Date: 20110930
  Receipt Date: 20101101
  Transmission Date: 20111222
  Serious: No
  Sender: FDA-Public Use
  Company Number: US-ASTRAZENECA-2010SE51714

PATIENT
  Sex: Female

DRUGS (1)
  1. ARIMIDEX [Suspect]
     Route: 048

REACTIONS (5)
  - HYPOACUSIS [None]
  - TOOTH INFECTION [None]
  - TOOTH DISORDER [None]
  - DIABETES MELLITUS [None]
  - ORAL PAIN [None]
